FAERS Safety Report 9475899 (Version 1)
Quarter: 2013Q3

REPORT INFORMATION
  Report Type: Spontaneous
  Country: US (occurrence: US)
  Receive Date: 20130826
  Receipt Date: 20130826
  Transmission Date: 20140515
  Serious: No
  Sender: FDA-Public Use
  Company Number: US-PFIZER INC-2013245781

PATIENT
  Age: 38 Year
  Sex: Female
  Weight: 66.21 kg

DRUGS (2)
  1. NEURONTIN [Suspect]
     Indication: BACK PAIN
     Dosage: 600 MG, 3X/DAY
     Dates: start: 2012
  2. NUCYNTA [Concomitant]
     Indication: BACK PAIN
     Dosage: 100 MG, 4X/DAY

REACTIONS (2)
  - Bruxism [Not Recovered/Not Resolved]
  - Dyskinesia [Not Recovered/Not Resolved]
